FAERS Safety Report 4648228-X (Version None)
Quarter: 2005Q2

REPORT INFORMATION
  Report Type: 
  Country: None (occurrence: None)
  Receive Date: 20050331
  Receipt Date: 20050209
  Transmission Date: 20051028
  Serious: No
  Sender: FDA-Public Use
  Company Number: 05P-163-0290075-00

PATIENT
  Age: 49 Year
  Sex: Female
  Weight: 73.4827 kg

DRUGS (4)
  1. HUMIRA [Suspect]
     Indication: SYSTEMIC LUPUS ERYTHEMATOSUS
     Dosage: 40 MG, 1 IN 2 WK
     Dates: start: 20050120, end: 20050203
  2. HYDROXYCHLOROQUINE PHOSPHATE [Concomitant]
  3. BENICAR [Concomitant]
  4. SINGULAIR [Concomitant]

REACTIONS (2)
  - INJECTION SITE IRRITATION [None]
  - NASOPHARYNGITIS [None]
